FAERS Safety Report 10010809 (Version 1)
Quarter: 2014Q1

REPORT INFORMATION
  Report Type: Spontaneous
  Country: DE (occurrence: None)
  Receive Date: 20140311
  Receipt Date: 20140311
  Transmission Date: 20141002
  Serious: Yes (Congenital Anomaly, Other)
  Sender: FDA-Public Use
  Company Number: AUR-APL-2014-02528

PATIENT
  Age: 1 Day
  Sex: Male
  Weight: 4.05 kg

DRUGS (5)
  1. PAROXETINE [Suspect]
     Indication: DEPRESSION
     Route: 064
     Dates: start: 20120818, end: 20130524
  2. THYROXIN (LEVOTHYROXINE SODIUM) [Concomitant]
  3. ESOMEPRAZOLE (ESOMEPRAZOLE) [Concomitant]
  4. FOLIO (FOLIO) [Concomitant]
  5. IMPSTOFF GRIPPE (INFLUENZA VACCINE) [Concomitant]

REACTIONS (5)
  - Maternal drugs affecting foetus [None]
  - Caesarean section [None]
  - Pulmonary valve stenosis congenital [None]
  - Atrial septal defect [None]
  - Feeding disorder neonatal [None]
